FAERS Safety Report 6355461-8 (Version None)
Quarter: 2009Q3

REPORT INFORMATION
  Report Type: 
  Country: None (occurrence: None)
  Receive Date: 20090914
  Receipt Date: 20090904
  Transmission Date: 20100115
  Serious: Yes (Other)
  Sender: FDA-Public Use
  Company Number: US-AMGEN-KDL338594

PATIENT
  Sex: Male
  Weight: 105.3 kg

DRUGS (1)
  1. ENBREL [Suspect]
     Indication: ANKYLOSING SPONDYLITIS
     Route: 058
     Dates: start: 20090225, end: 20090401

REACTIONS (3)
  - CONSTIPATION [None]
  - GASTRITIS [None]
  - ILEITIS [None]
